FAERS Safety Report 5834222-X (Version None)
Quarter: 2008Q3

REPORT INFORMATION
  Report Type: 
  Country: None (occurrence: None)
  Receive Date: 20080805
  Receipt Date: 20080728
  Transmission Date: 20090109
  Serious: Yes (Hospitalization, Other)
  Sender: FDA-Public Use
  Company Number: US-KINGPHARMUSA00001-K200800874

PATIENT

DRUGS (1)
  1. CORGARD [Suspect]
     Route: 064

REACTIONS (11)
  - ANAEMIA [None]
  - DRUG EXPOSURE DURING PREGNANCY [None]
  - FOETAL CARDIAC DISORDER [None]
  - FOETAL GROWTH RETARDATION [None]
  - GENERALISED OEDEMA [None]
  - HYPOGLYCAEMIA [None]
  - HYPOPROTEINAEMIA [None]
  - NEONATAL RESPIRATORY DISTRESS SYNDROME [None]
  - OLIGOHYDRAMNIOS [None]
  - PREMATURE BABY [None]
  - THROMBOCYTOPENIA NEONATAL [None]
